FAERS Safety Report 7822300-5 (Version None)
Quarter: 2011Q4

REPORT INFORMATION
  Report Type: 
  Country: None (occurrence: None)
  Receive Date: 20111018
  Receipt Date: 20101130
  Transmission Date: 20120403
  Serious: No
  Sender: FDA-Public Use
  Company Number: US-ASTRAZENECA-2010SE56992

PATIENT
  Sex: Female

DRUGS (2)
  1. SPIRIVA [Concomitant]
  2. SYMBICORT [Suspect]
     Dosage: 160/4.5 MCG 2 PUFFS BID
     Route: 055

REACTIONS (4)
  - MITRAL VALVE INCOMPETENCE [None]
  - MUSCLE SPASMS [None]
  - DYSPNOEA [None]
  - PULMONARY CONGESTION [None]
